FAERS Safety Report 15192153 (Version 2)
Quarter: 2018Q3

REPORT INFORMATION
  Report Type: Spontaneous
  Country: JP (occurrence: JP)
  Receive Date: 20180724
  Receipt Date: 20180724
  Transmission Date: 20181010
  Serious: Yes (Life-Threatening)
  Sender: FDA-Public Use
  Company Number: PHHY2018JP047891

PATIENT
  Age: 12 Year
  Sex: Female

DRUGS (4)
  1. PROPANOLOL [Suspect]
     Active Substance: PROPRANOLOL HYDROCHLORIDE
     Indication: COAGULOPATHY
     Dosage: 2 MG/KG, QD
     Route: 065
  2. PREDNISOLONE. [Suspect]
     Active Substance: PREDNISOLONE
     Indication: COAGULOPATHY
     Dosage: 0.3 MG/KG, QD
     Route: 065
  3. PREDNISOLONE. [Suspect]
     Active Substance: PREDNISOLONE
     Dosage: 1.5 MG/KG, QD
     Route: 065
  4. VINCRISTINE [Suspect]
     Active Substance: VINCRISTINE
     Indication: COAGULOPATHY
     Dosage: 1.5 MG/M2, QW
     Route: 065

REACTIONS (7)
  - Ecchymosis [Recovering/Resolving]
  - Skin induration [Recovering/Resolving]
  - Product use in unapproved indication [Unknown]
  - Concomitant disease aggravated [Recovering/Resolving]
  - Haemangioma-thrombocytopenia syndrome [Recovering/Resolving]
  - Epistaxis [Recovering/Resolving]
  - Facial pain [Recovering/Resolving]
